FAERS Safety Report 7253662-8 (Version None)
Quarter: 2011Q1

REPORT INFORMATION
  Report Type: 
  Country: None (occurrence: None)
  Receive Date: 20110129
  Receipt Date: 20100127
  Transmission Date: 20110831
  Serious: No
  Sender: FDA-Public Use
  Company Number: US-ABBOTT-10P-163-0623258-00

PATIENT
  Sex: Male
  Weight: 73.548 kg

DRUGS (2)
  1. HUMIRA [Suspect]
     Indication: CROHN'S DISEASE
     Route: 058
     Dates: start: 20100118
  2. HUMIRA [Suspect]
     Dates: start: 20030101, end: 20040101

REACTIONS (3)
  - BLOOD MAGNESIUM DECREASED [None]
  - DIARRHOEA [None]
  - ABDOMINAL PAIN [None]
